FAERS Safety Report 4501283-X (Version None)
Quarter: 2004Q4

REPORT INFORMATION
  Report Type: 
  Country: None (occurrence: None)
  Receive Date: 20041110
  Receipt Date: 20041102
  Transmission Date: 20050328
  Serious: No
  Sender: FDA-Public Use
  Company Number: 2004236391DE

PATIENT
  Age: 42 Year
  Sex: Female
  Weight: 58 kg

DRUGS (1)
  1. DOSTINEX [Suspect]
     Indication: BREAST DISORDER
     Dosage: 0.5 MG, QD, ORAL
     Route: 048
     Dates: start: 20040924, end: 20040925

REACTIONS (1)
  - HEMIANOPIA [None]
